FAERS Safety Report 4767847-3 (Version None)
Quarter: 2005Q3

REPORT INFORMATION
  Report Type: 
  Country: None (occurrence: None)
  Receive Date: 20050912
  Receipt Date: 20050823
  Transmission Date: 20060218
  Serious: Yes (Hospitalization)
  Sender: FDA-Public Use
  Company Number: ENTC2005-0259

PATIENT
  Age: 73 Year
  Sex: Male
  Weight: 71.8 kg

DRUGS (1)
  1. STALEVO (UNKNOWN)  (LEVODOPA, CARBIDOPA, ENTACAPONE) [Suspect]
     Indication: PARKINSON'S DISEASE
     Dosage: ORAL
     Route: 048
     Dates: start: 20050414

REACTIONS (1)
  - RENAL MASS [None]
